FAERS Safety Report 21089248 (Version 1)
Quarter: 2022Q3

REPORT INFORMATION
  Report Type: Report from Study
  Country: US (occurrence: None)
  Receive Date: 20220715
  Receipt Date: 20220715
  Transmission Date: 20221027
  Serious: Yes (Hospitalization)
  Sender: FDA-Public Use
  Company Number: 2022A251303

PATIENT
  Sex: Female

DRUGS (1)
  1. CALQUENCE [Suspect]
     Active Substance: ACALABRUTINIB
     Indication: Hodgkin^s disease
     Route: 048

REACTIONS (12)
  - Blood sodium decreased [Unknown]
  - Asthenia [Unknown]
  - Urinary tract infection [Unknown]
  - Decreased appetite [Unknown]
  - Extrasystoles [Unknown]
  - Weight decreased [Unknown]
  - Arthropathy [Unknown]
  - Gait disturbance [Unknown]
  - Dyspnoea [Unknown]
  - Dizziness [Unknown]
  - Device ineffective [Unknown]
  - Product dose omission issue [Unknown]
